FAERS Safety Report 16172967 (Version 5)
Quarter: 2019Q2

REPORT INFORMATION
  Report Type: Spontaneous
  Country: US (occurrence: US)
  Receive Date: 20190409
  Receipt Date: 20190626
  Transmission Date: 20190711
  Serious: No
  Sender: FDA-Public Use
  Company Number: US-PFIZER INC-2019144172

PATIENT
  Age: 84 Year
  Sex: Female
  Weight: 61 kg

DRUGS (7)
  1. LYRICA [Suspect]
     Active Substance: PREGABALIN
     Indication: PAIN
     Dosage: 50 MG, 3X/DAY (1 THREE TIMES A DAY)
     Route: 048
     Dates: start: 201903, end: 201903
  2. LYRICA [Suspect]
     Active Substance: PREGABALIN
     Indication: URTICARIA
     Dosage: 50 MG, 1X/DAY (1 CAPSULE BY MOUTH AS DIRECTED AT BEDTIME FOR 7 DAYS)
     Route: 048
     Dates: start: 201903, end: 201903
  3. OXYCODONE [Concomitant]
     Active Substance: OXYCODONE
     Indication: PAIN
     Dosage: UNK
  4. HYDROCODONE [Concomitant]
     Active Substance: HYDROCODONE
     Indication: PAIN
     Dosage: 1 DF, UNK
     Route: 048
  5. HYDROCODONE/ACETAMINOPHEN [Concomitant]
     Active Substance: ACETAMINOPHEN\HYDROCODONE
     Indication: PAIN
     Dosage: 1 DF, UNK ([HYDROCODONE:5 /ACETAMINOPHEN: 325 MG EVERY 3-4 HOURS)
     Route: 048
  6. LYRICA [Suspect]
     Active Substance: PREGABALIN
     Dosage: 50 MG, 4X/DAY
     Route: 048
     Dates: start: 2019
  7. LYRICA [Suspect]
     Active Substance: PREGABALIN
     Indication: HERPES ZOSTER
     Dosage: 50 MG, 2X/DAY (1 TWICE DAILY FOR 7 DAYS)
     Route: 048
     Dates: start: 201903, end: 201903

REACTIONS (4)
  - Off label use [Unknown]
  - Product use issue [Unknown]
  - Somnolence [Unknown]
  - Drug ineffective [Unknown]

NARRATIVE: CASE EVENT DATE: 2019
